FAERS Safety Report 9896975 (Version 1)
Quarter: 2014Q1

REPORT INFORMATION
  Report Type: Spontaneous
  Country: US (occurrence: US)
  Receive Date: 20140214
  Receipt Date: 20140214
  Transmission Date: 20141002
  Serious: Yes (Hospitalization)
  Sender: FDA-Public Use
  Company Number: US-BIOGENIDEC-2014BI013332

PATIENT
  Sex: Male
  Weight: 84 kg

DRUGS (17)
  1. AVONEX [Suspect]
     Indication: SECONDARY PROGRESSIVE MULTIPLE SCLEROSIS
     Route: 030
     Dates: start: 19991001
  2. METHYLPHENIDATE HCL [Concomitant]
     Indication: FATIGUE
     Route: 048
  3. AVONEX [Suspect]
     Indication: SECONDARY PROGRESSIVE MULTIPLE SCLEROSIS
     Route: 030
  4. METHYLPHENIDATE HCL [Concomitant]
     Indication: FATIGUE
     Route: 048
  5. VITAMIN D3 [Concomitant]
     Route: 048
  6. B COMPLEX [Concomitant]
     Route: 048
  7. CALCIUM [Concomitant]
     Route: 048
  8. PROPRANOLOL HCL ER [Concomitant]
     Route: 048
  9. GABAPENTIN [Concomitant]
     Indication: INTENTION TREMOR
     Route: 048
  10. GABAPENTIN [Concomitant]
     Indication: PAIN
     Route: 048
  11. GABAPENTIN [Concomitant]
     Indication: MUSCLE SPASMS
     Route: 048
  12. PRIMIDONE [Concomitant]
     Indication: INTENTION TREMOR
     Route: 048
  13. PRIMIDONE [Concomitant]
     Indication: INTENTION TREMOR
     Route: 048
  14. CLONAZEPAM [Concomitant]
     Route: 048
  15. OMEPRAZOLE [Concomitant]
     Route: 048
  16. TOPAMAX [Concomitant]
     Indication: TREMOR
  17. FOSAMAX [Concomitant]

REACTIONS (7)
  - Depressed level of consciousness [Unknown]
  - Pallor [Unknown]
  - Off label use [Not Recovered/Not Resolved]
  - Oesophageal disorder [Not Recovered/Not Resolved]
  - Bone disorder [Not Recovered/Not Resolved]
  - Depression [Not Recovered/Not Resolved]
  - Anxiety [Not Recovered/Not Resolved]
